FAERS Safety Report 15665143 (Version 1)
Quarter: 2018Q4

REPORT INFORMATION
  Report Type: Spontaneous
  Country: CA (occurrence: CA)
  Receive Date: 20181128
  Receipt Date: 20181128
  Transmission Date: 20190205
  Serious: Yes (Other)
  Sender: FDA-Public Use
  Company Number: CA-SA-2018SA156751

PATIENT
  Sex: Female

DRUGS (3)
  1. ENBREL [Concomitant]
     Active Substance: ETANERCEPT
     Dosage: 50 MG, QW
     Route: 065
     Dates: start: 20170201, end: 20180430
  2. ARAVA [Suspect]
     Active Substance: LEFLUNOMIDE
     Indication: ABDOMINAL DISCOMFORT
     Dosage: 10 MG
     Route: 065
     Dates: start: 20171027
  3. METHOTREXATE. [Concomitant]
     Active Substance: METHOTREXATE
     Dosage: 20 MG, QW
     Route: 065
     Dates: start: 20151119, end: 20171027

REACTIONS (1)
  - Rheumatoid arthritis [Unknown]

NARRATIVE: CASE EVENT DATE: 20181022
